FAERS Safety Report 5277053-4 (Version None)
Quarter: 2007Q1

REPORT INFORMATION
  Report Type: 
  Country: None (occurrence: None)
  Receive Date: 20070327
  Receipt Date: 20070228
  Transmission Date: 20070707
  Serious: No
  Sender: FDA-Public Use
  Company Number: US-BRISTOL-MYERS SQUIBB COMPANY-13694989

PATIENT
  Age: 50 Year
  Sex: Female
  Weight: 91 kg

DRUGS (8)
  1. ORENCIA [Suspect]
     Indication: RHEUMATOID ARTHRITIS
     Route: 042
     Dates: start: 20070125, end: 20070125
  2. TOPROL-XL [Concomitant]
  3. HYDROCODONE [Concomitant]
  4. MULTI-VITAMIN [Concomitant]
  5. METHOTREXATE [Concomitant]
  6. LEUCOVORIN CALCIUM [Concomitant]
  7. LASIX [Concomitant]
  8. POTASSIUM ACETATE [Concomitant]

REACTIONS (1)
  - PRE-EXISTING CONDITION IMPROVED [None]
